FAERS Safety Report 25362121 (Version 1)
Quarter: 2025Q2

REPORT INFORMATION
  Report Type: Spontaneous
  Country: US (occurrence: None)
  Receive Date: 20250523
  Receipt Date: 20250523
  Transmission Date: 20250717
  Serious: Yes (Other)
  Sender: FDA-CTU
  Company Number: None

PATIENT
  Age: 79 Year
  Sex: Male

DRUGS (1)
  1. CABOMETYX [Suspect]
     Active Substance: CABOZANTINIB S-MALATE
     Dates: start: 20250402, end: 20250523

REACTIONS (6)
  - Adverse drug reaction [None]
  - Vision blurred [None]
  - Dizziness [None]
  - Weight decreased [None]
  - Asthenia [None]
  - Visual impairment [None]

NARRATIVE: CASE EVENT DATE: 20250523
